FAERS Safety Report 24033449 (Version 1)
Quarter: 2024Q3

REPORT INFORMATION
  Report Type: Spontaneous
  Country: US (occurrence: US)
  Receive Date: 20240701
  Receipt Date: 20240701
  Transmission Date: 20241017
  Serious: No
  Sender: UCB
  Company Number: US-UCBSA-2023059845

PATIENT
  Age: 78 Year
  Sex: Male

DRUGS (3)
  1. MIDAZOLAM [Suspect]
     Active Substance: MIDAZOLAM
     Indication: Sedation
     Dosage: UNK
  2. MIDAZOLAM [Suspect]
     Active Substance: MIDAZOLAM
     Indication: Off label use
  3. FENTANYL [Concomitant]
     Active Substance: FENTANYL\FENTANYL CITRATE
     Indication: Sedation
     Dosage: UNK

REACTIONS (1)
  - No adverse event [Unknown]
